FAERS Safety Report 5129676-0 (Version None)
Quarter: 2006Q4

REPORT INFORMATION
  Report Type: 
  Country: None (occurrence: None)
  Receive Date: 20061018
  Receipt Date: 20061016
  Transmission Date: 20070319
  Serious: Yes (Other)
  Sender: FDA-Public Use
  Company Number: US-GLAXOSMITHKLINE-A0623934A

PATIENT
  Sex: Female

DRUGS (1)
  1. WELLBUTRIN [Suspect]
     Indication: DEPRESSION
     Route: 048

REACTIONS (7)
  - AMENORRHOEA [None]
  - BREAST TENDERNESS [None]
  - MIGRAINE [None]
  - MOOD SWINGS [None]
  - NIGHT SWEATS [None]
  - OEDEMA [None]
  - PREMENSTRUAL SYNDROME [None]
